FAERS Safety Report 16670780 (Version 2)
Quarter: 2021Q2

REPORT INFORMATION
  Report Type: Spontaneous
  Country: US (occurrence: US)
  Receive Date: 20190805
  Receipt Date: 20210521
  Transmission Date: 20210716
  Serious: No
  Sender: FDA-Public Use
  Company Number: US-RADIUS HEALTH INC.-2019US001495

PATIENT
  Age: 63 Year
  Sex: Female

DRUGS (3)
  1. TYMLOS [Suspect]
     Active Substance: ABALOPARATIDE
     Indication: OSTEOPOROSIS POSTMENOPAUSAL
     Dosage: 80MCG/QD
     Route: 058
     Dates: start: 20190401
  2. TYMLOS [Suspect]
     Active Substance: ABALOPARATIDE
     Dosage: 80MCG/QD
     Route: 058
     Dates: start: 20190401
  3. MISOPROSTOL. [Suspect]
     Active Substance: MISOPROSTOL
     Indication: CERVICAL DILATATION
     Dosage: SINGLE DOSE

REACTIONS (13)
  - Injection site rash [Recovered/Resolved]
  - Product quality issue [Unknown]
  - Rash [Unknown]
  - Headache [Recovered/Resolved]
  - Product complaint [Unknown]
  - Exposure via skin contact [Unknown]
  - Product dose omission issue [Unknown]
  - Wrong technique in product usage process [Recovered/Resolved]
  - Product storage error [Recovered/Resolved]
  - Stress [Not Recovered/Not Resolved]
  - Heart rate increased [Recovered/Resolved]
  - Multiple use of single-use product [Recovered/Resolved]
  - Product administered at inappropriate site [Recovered/Resolved]

NARRATIVE: CASE EVENT DATE: 20190402
